FAERS Safety Report 22058950 (Version 2)
Quarter: 2023Q1

REPORT INFORMATION
  Report Type: Report from Study
  Country: US (occurrence: US)
  Receive Date: 20230303
  Receipt Date: 20230324
  Transmission Date: 20230417
  Serious: Yes (Other)
  Sender: FDA-Public Use
  Company Number: US-GILEAD-2023-0618858

PATIENT
  Sex: Female

DRUGS (2)
  1. AMBRISENTAN [Suspect]
     Active Substance: AMBRISENTAN
     Indication: Pulmonary arterial hypertension
     Dosage: 10 MG, QD
     Route: 065
     Dates: start: 20220210
  2. TADALAFIL [Concomitant]
     Active Substance: TADALAFIL

REACTIONS (4)
  - Systemic lupus erythematosus [Not Recovered/Not Resolved]
  - Depression [Unknown]
  - Alopecia [Unknown]
  - Product dose omission issue [Unknown]
